FAERS Safety Report 6180033-8 (Version None)
Quarter: 2009Q2

REPORT INFORMATION
  Report Type: 
  Country: None (occurrence: None)
  Receive Date: 20090505
  Receipt Date: 20090420
  Transmission Date: 20091009
  Serious: Yes (Death)
  Sender: FDA-Public Use
  Company Number: CA-GENENTECH-246063

PATIENT
  Age: 58 Year
  Sex: Male

DRUGS (1)
  1. RITUXAN [Suspect]
     Indication: B-CELL LYMPHOMA
     Dosage: UNK, 1/WEEK
     Route: 042
     Dates: start: 20070621, end: 20070718

REACTIONS (2)
  - DEATH [None]
  - OPTIC NEUROPATHY [None]
